FAERS Safety Report 7937733 (Version 3)
Quarter: 2019Q3

REPORT INFORMATION
  Report Type: Spontaneous
  Country: US (occurrence: US)
  Receive Date: 20110510
  Receipt Date: 20190724
  Transmission Date: 20191005
  Serious: No
  Sender: FDA-Public Use
  Company Number: US-JNJFOC-20071102688

PATIENT
  Age: 38 Year
  Sex: Female
  Weight: 59.93 kg

DRUGS (12)
  1. LYRICA [Concomitant]
     Active Substance: PREGABALIN
     Indication: MUSCLE SPASMS
     Route: 048
     Dates: start: 2004
  2. NEXIUM [Concomitant]
     Active Substance: ESOMEPRAZOLE MAGNESIUM
     Indication: ULCER
     Route: 048
     Dates: start: 1990
  3. DURAGESIC [Suspect]
     Active Substance: FENTANYL
     Route: 062
  4. DURAGESIC [Suspect]
     Active Substance: FENTANYL
     Route: 062
  5. DURAGESIC [Suspect]
     Active Substance: FENTANYL
     Route: 062
  6. DURAGESIC [Suspect]
     Active Substance: FENTANYL
     Route: 062
  7. DURAGESIC [Suspect]
     Active Substance: FENTANYL
     Route: 062
  8. MOBIC [Concomitant]
     Active Substance: MELOXICAM
     Indication: INFLAMMATION
     Route: 048
     Dates: start: 2000
  9. DURAGESIC [Suspect]
     Active Substance: FENTANYL
     Route: 062
  10. DURAGESIC [Suspect]
     Active Substance: FENTANYL
     Route: 062
  11. DURAGESIC [Suspect]
     Active Substance: FENTANYL
     Indication: SPINAL OPERATION
     Dosage: 100MCG X 2 EQUAL TO 200MCG
     Route: 062
     Dates: start: 2000
  12. XANAX [Concomitant]
     Active Substance: ALPRAZOLAM
     Indication: MUSCLE SPASMS
     Route: 048
     Dates: start: 2000

REACTIONS (9)
  - Drug screen negative [Unknown]
  - Inappropriate schedule of product administration [Unknown]
  - Application site irritation [Unknown]
  - Application site pruritus [Unknown]
  - Drug ineffective [Unknown]
  - Product complaint [Unknown]
  - Incorrect dose administered [Unknown]
  - Application site hypersensitivity [Unknown]
  - Product dose omission [Unknown]

NARRATIVE: CASE EVENT DATE: 20071004
